FAERS Safety Report 7268445-2 (Version None)
Quarter: 2011Q1

REPORT INFORMATION
  Report Type: 
  Country: None (occurrence: None)
  Receive Date: 20110201
  Receipt Date: 20110127
  Transmission Date: 20110831
  Serious: Yes (Other)
  Sender: FDA-Public Use
  Company Number: US-PFIZER INC-2011020030

PATIENT
  Sex: Male
  Weight: 105 kg

DRUGS (2)
  1. LISINOPRIL [Concomitant]
     Indication: HYPERTENSION
     Dosage: UNK
  2. LIPITOR [Suspect]
     Indication: BLOOD CHOLESTEROL INCREASED
     Dosage: 80 MG, DAILY
     Route: 048
     Dates: start: 20100101

REACTIONS (4)
  - CORONARY ARTERY OCCLUSION [None]
  - DEPRESSION [None]
  - MALAISE [None]
  - CHEST PAIN [None]
